FAERS Safety Report 25380621 (Version 1)
Quarter: 2025Q2

REPORT INFORMATION
  Report Type: Spontaneous
  Country: US (occurrence: None)
  Receive Date: 20250530
  Receipt Date: 20250530
  Transmission Date: 20250716
  Serious: No
  Sender: FDA-CTU
  Company Number: None

PATIENT

DRUGS (1)
  1. ABIRATERONE [Suspect]
     Active Substance: ABIRATERONE

REACTIONS (7)
  - Asthenia [None]
  - Incoherent [None]
  - Dizziness [None]
  - Fatigue [None]
  - Vomiting [None]
  - Anxiety [None]
  - Depression [None]
